FAERS Safety Report 5134311-1 (Version None)
Quarter: 2006Q4

REPORT INFORMATION
  Report Type: 
  Country: None (occurrence: None)
  Receive Date: 20060831
  Receipt Date: 20060531
  Transmission Date: 20070319
  Serious: No
  Sender: FDA-Public Use
  Company Number: 2006-BP-06076BP

PATIENT
  Sex: Male

DRUGS (4)
  1. SPIRIVA [Suspect]
     Indication: CHRONIC OBSTRUCTIVE PULMONARY DISEASE
     Dosage: 18 MCG (18 MCG,1 INH QD),IH
     Dates: start: 20050501
  2. ALBUTEROL [Concomitant]
  3. ADVAIR (SERETIDE /01420901/) [Concomitant]
  4. SINGULAIR [Concomitant]

REACTIONS (3)
  - CHOKING [None]
  - COUGH [None]
  - DYSPNOEA [None]
